FAERS Safety Report 25735751 (Version 1)
Quarter: 2025Q3

REPORT INFORMATION
  Report Type: Spontaneous
  Country: US (occurrence: US)
  Receive Date: 20250828
  Receipt Date: 20250828
  Transmission Date: 20251021
  Serious: No
  Sender: IPSEN BIOPHARMACEUTICALS, INC.
  Company Number: US-IPSEN Group, Research and Development-2025-20515

PATIENT
  Sex: Female

DRUGS (15)
  1. IQIRVO [Suspect]
     Active Substance: ELAFIBRANOR
     Indication: Primary biliary cholangitis
     Route: 048
     Dates: start: 20250528
  2. DULOXETINE [Concomitant]
     Active Substance: DULOXETINE
  3. ESTRADIOL [Concomitant]
     Active Substance: ESTRADIOL
  4. HYDROXYCHLOROQUINE [Concomitant]
     Active Substance: HYDROXYCHLOROQUINE
  5. METHOTREXATE [Concomitant]
     Active Substance: METHOTREXATE
  6. METHYLPREDNISOLONE [Concomitant]
     Active Substance: METHYLPREDNISOLONE
  7. MONTELUKAST [Concomitant]
     Active Substance: MONTELUKAST
  8. OCALIVA [Concomitant]
     Active Substance: OBETICHOLIC ACID
  9. OMEPRAZOLE [Concomitant]
     Active Substance: OMEPRAZOLE
  10. OZEMPIC [Concomitant]
     Active Substance: SEMAGLUTIDE
  11. PREDNISONE [Concomitant]
     Active Substance: PREDNISONE
  12. SUMATRIPTAN [Concomitant]
     Active Substance: SUMATRIPTAN
  13. TRAMADOL HCL [Concomitant]
     Active Substance: TRAMADOL HYDROCHLORIDE
  14. TRULICITY [Concomitant]
     Active Substance: DULAGLUTIDE
  15. TRULICITY [Concomitant]
     Active Substance: DULAGLUTIDE

REACTIONS (2)
  - Product dose omission issue [Unknown]
  - Weight increased [Unknown]
